FAERS Safety Report 7625461-6 (Version None)
Quarter: 2011Q3

REPORT INFORMATION
  Report Type: 
  Country: None (occurrence: None)
  Receive Date: 20110721
  Receipt Date: 20110711
  Transmission Date: 20111222
  Serious: Yes (Life-Threatening, Hospitalization)
  Sender: FDA-Public Use
  Company Number: US-BAYER-201029789NA

PATIENT
  Age: 18 Year
  Sex: Female

DRUGS (3)
  1. HYDROCODONE BITARTRATE AND ACETAMINOPHEN [Concomitant]
     Dosage: UNK
     Dates: start: 20080822
  2. YAZ [Suspect]
     Indication: ORAL CONTRACEPTION
     Dosage: UNK
     Route: 048
     Dates: start: 20071101, end: 20080801
  3. AMOXICILLIN [Concomitant]
     Dosage: 875 MG, UNK
     Dates: start: 20080715

REACTIONS (5)
  - DEEP VEIN THROMBOSIS [None]
  - ASTHENIA [None]
  - FATIGUE [None]
  - ANXIETY [None]
  - DEFORMITY [None]
